FAERS Safety Report 10024128 (Version 1)
Quarter: 2014Q1

REPORT INFORMATION
  Report Type: Spontaneous
  Country: US (occurrence: US)
  Receive Date: 20140320
  Receipt Date: 20140320
  Transmission Date: 20141002
  Serious: No
  Sender: FDA-Public Use
  Company Number: US-PFIZER INC-2014080883

PATIENT
  Sex: Female

DRUGS (3)
  1. XANAX [Suspect]
     Dosage: UNK
  2. ZOLOFT [Suspect]
     Dosage: 100 MG, DAILY
     Dates: start: 2014
  3. WELLBUTRIN [Suspect]
     Dosage: UNK

REACTIONS (1)
  - Somnolence [Unknown]
